FAERS Safety Report 16163038 (Version 1)
Quarter: 2019Q2

REPORT INFORMATION
  Report Type: Spontaneous
  Country: US (occurrence: US)
  Receive Date: 20190405
  Receipt Date: 20190405
  Transmission Date: 20190711
  Serious: Yes (Other)
  Sender: FDA-Public Use
  Company Number: US-ASTRAZENECA-2019SE49324

PATIENT
  Age: 66 Year
  Sex: Male

DRUGS (2)
  1. ASPIRIN. [Concomitant]
     Active Substance: ASPIRIN
     Indication: THROMBOSIS PROPHYLAXIS
     Route: 065
  2. TICAGRELOR. [Suspect]
     Active Substance: TICAGRELOR
     Indication: THROMBOSIS PROPHYLAXIS
     Dosage: 180.0MG ONCE/SINGLE ADMINISTRATION
     Route: 048

REACTIONS (5)
  - Enlarged uvula [Recovering/Resolving]
  - Angioedema [Recovering/Resolving]
  - Type I hypersensitivity [Unknown]
  - Pharyngeal swelling [Recovering/Resolving]
  - Swollen tongue [Recovering/Resolving]
